FAERS Safety Report 19542785 (Version 5)
Quarter: 2021Q3

REPORT INFORMATION
  Report Type: Spontaneous
  Country: US (occurrence: US)
  Receive Date: 20210713
  Receipt Date: 20210824
  Transmission Date: 20211014
  Serious: Yes (Life-Threatening, Other)
  Sender: FDA-Public Use
  Company Number: US-PFIZER INC-2021813691

PATIENT
  Age: 61 Year
  Sex: Female

DRUGS (7)
  1. FENTANYL CITRATE. [Suspect]
     Active Substance: FENTANYL CITRATE
     Dosage: 75 UG (PER HR PER DAY)
     Route: 042
  2. FENTANYL CITRATE. [Suspect]
     Active Substance: FENTANYL CITRATE
     Dosage: 300 UG (PER HR ON MECHANICAL VENTILATION DAY 5/ THE PATIENT HAD RECEIVED ROUGHLY 11 000 UG (11.1 MG)
     Route: 042
  3. FENTANYL CITRATE. [Suspect]
     Active Substance: FENTANYL CITRATE
     Dosage: UNK (INFUSION WAS TITRATED DOWN RAPIDLY OVER A 3?HOUR PERIOD)
     Route: 042
  4. MIDAZOLAM. [Concomitant]
     Active Substance: MIDAZOLAM
     Indication: SEDATIVE THERAPY
     Dosage: 1 MG (PER HR INFUSION)
     Route: 042
  5. MIDAZOLAM. [Concomitant]
     Active Substance: MIDAZOLAM
     Dosage: 6 MG (PER HR INFUSION)
     Route: 042
  6. FENTANYL CITRATE. [Suspect]
     Active Substance: FENTANYL CITRATE
     Indication: SEDATIVE THERAPY
     Dosage: 50 UG (PER HR)
     Route: 042
  7. CALCIUM CHLORIDE/POTASSIUM CHLORIDE/SODIUM LACTATE [Concomitant]
     Active Substance: CALCIUM CHLORIDE\POTASSIUM CHLORIDE\SODIUM LACTATE
     Indication: PANCREATITIS
     Dosage: UNK
     Route: 042

REACTIONS (2)
  - Muscle rigidity [Recovering/Resolving]
  - Hypoxia [Recovering/Resolving]
